FAERS Safety Report 5531658-1 (Version None)
Quarter: 2007Q4

REPORT INFORMATION
  Report Type: 
  Country: None (occurrence: None)
  Receive Date: 20071128
  Receipt Date: 20071115
  Transmission Date: 20080405
  Serious: Yes (Death)
  Sender: FDA-Public Use
  Company Number: GXKR2007GB09833

PATIENT
  Age: 51 Year
  Sex: Male

DRUGS (3)
  1. ITRACONAZOLE [Suspect]
     Indication: ASPERGILLOMA
     Dosage: 200 MG,
     Dates: start: 19991001
  2. VORICONAZOLE(VORICONAZOLE) UNKNOWN [Suspect]
     Indication: ASPERGILLOMA
     Dates: start: 20030101
  3. AMPHOTERICIN B (AMPHOTERICIN B) UNKNOWN [Concomitant]

REACTIONS (9)
  - ASPERGILLOMA [None]
  - ASPERGILLOSIS [None]
  - DISEASE PROGRESSION [None]
  - DRUG RESISTANCE [None]
  - GENERAL PHYSICAL HEALTH DETERIORATION [None]
  - NAUSEA [None]
  - RESPIRATORY FAILURE [None]
  - TREATMENT NONCOMPLIANCE [None]
  - WEIGHT DECREASED [None]
